FAERS Safety Report 19939720 (Version 1)
Quarter: 2021Q4

REPORT INFORMATION
  Report Type: Report from Study
  Country: None (occurrence: US)
  Receive Date: 20211012
  Receipt Date: 20211012
  Transmission Date: 20220303
  Serious: Yes (Other)
  Sender: FDA-Public Use
  Company Number: US-ABBVIE-21K-163-4111786-00

PATIENT
  Age: 67 Year
  Sex: Female
  Weight: 68.1 kg

DRUGS (1)
  1. CREON [Suspect]
     Active Substance: PANCRELIPASE AMYLASE\PANCRELIPASE LIPASE\PANCRELIPASE PROTEASE
     Indication: Pancreatic disorder
     Dosage: 2 EVERY MEAL??1 EVERY SNACK
     Route: 048
     Dates: start: 202011

REACTIONS (3)
  - Herpes ophthalmic [Unknown]
  - SARS-CoV-2 test positive [Unknown]
  - Retinal detachment [Unknown]

NARRATIVE: CASE EVENT DATE: 20201201
